FAERS Safety Report 5250610-7 (Version None)
Quarter: 2007Q1

REPORT INFORMATION
  Report Type: 
  Country: None (occurrence: None)
  Receive Date: 20070228
  Receipt Date: 20060616
  Transmission Date: 20070707
  Serious: No
  Sender: FDA-Public Use
  Company Number: US-GLAXOSMITHKLINE-A0607940A

PATIENT
  Age: 26 Year
  Sex: Female

DRUGS (4)
  1. LAMICTAL [Suspect]
     Indication: BIPOLAR DISORDER
     Dosage: 100MG PER DAY
     Route: 048
     Dates: start: 20060426, end: 20060604
  2. WELLBUTRIN XL [Concomitant]
  3. KLONOPIN [Concomitant]
  4. ABILIFY [Concomitant]

REACTIONS (8)
  - DRY SKIN [None]
  - ERYTHEMA [None]
  - EYE SWELLING [None]
  - PAIN OF SKIN [None]
  - PRURITUS [None]
  - RASH [None]
  - SKIN BURNING SENSATION [None]
  - SKIN INFLAMMATION [None]
